FAERS Safety Report 4530548-0 (Version None)
Quarter: 2004Q4

REPORT INFORMATION
  Report Type: 
  Country: None (occurrence: None)
  Receive Date: 20041216
  Receipt Date: 20041125
  Transmission Date: 20050328
  Serious: Yes (Hospitalization, Other)
  Sender: FDA-Public Use
  Company Number: JP_041205301

PATIENT
  Age: 4 Year
  Sex: Male

DRUGS (4)
  1. ONCOVIN [Suspect]
     Indication: NEUROBLASTOMA
  2. CYCLOPHOSPHAMIDE [Concomitant]
  3. CISPLATIN [Concomitant]
  4. PIRARUBICIN [Concomitant]

REACTIONS (3)
  - BLOOD CATECHOLAMINES INCREASED [None]
  - CORD BLOOD TRANSPLANT THERAPY [None]
  - REVERSIBLE POSTERIOR LEUKOENCEPHALOPATHY SYNDROME [None]
